FAERS Safety Report 4912719-4 (Version None)
Quarter: 2006Q1

REPORT INFORMATION
  Report Type: 
  Country: None (occurrence: None)
  Receive Date: 20060215
  Receipt Date: 20060208
  Transmission Date: 20060701
  Serious: Yes (Other)
  Sender: FDA-Public Use
  Company Number: GB-MERCK-0602GBR00056

PATIENT
  Age: 77 Year
  Sex: Female

DRUGS (3)
  1. VYTORIN [Suspect]
     Indication: HYPERCHOLESTEROLAEMIA
     Route: 048
     Dates: start: 20051111, end: 20051215
  2. GLICLAZIDE [Concomitant]
     Indication: LYMPHOCYTE COUNT ABNORMAL
     Route: 065
  3. ROSIGLITAZONE MALEATE [Concomitant]
     Route: 065

REACTIONS (1)
  - APLASTIC ANAEMIA [None]
